FAERS Safety Report 6648623-3 (Version None)
Quarter: 2010Q1

REPORT INFORMATION
  Report Type: 
  Country: None (occurrence: None)
  Receive Date: 20100324
  Receipt Date: 20100317
  Transmission Date: 20100710
  Serious: Yes (Other)
  Sender: FDA-Public Use
  Company Number: US-SANOFI-AVENTIS-2010SA016456

PATIENT
  Age: 80 Year
  Sex: Male

DRUGS (1)
  1. PLAVIX [Suspect]
     Route: 048
     Dates: start: 19980101, end: 20091101

REACTIONS (2)
  - CONTUSION [None]
  - PARKINSON'S DISEASE [None]
